FAERS Safety Report 23914321 (Version 2)
Quarter: 2024Q2

REPORT INFORMATION
  Report Type: Report from Study
  Country: ES (occurrence: ES)
  Receive Date: 20240529
  Receipt Date: 20240605
  Transmission Date: 20240715
  Serious: Yes (Other)
  Sender: FDA-Public Use
  Company Number: ES-BAYER-2024A076066

PATIENT
  Age: 73 Year
  Sex: Male

DRUGS (1)
  1. EYLEA [Suspect]
     Active Substance: AFLIBERCEPT
     Indication: Neovascular age-related macular degeneration
     Dosage: 2 MG. BOTH EYES, SOLUTION FOR INJECTION , 40 MG/ML
     Dates: start: 2016, end: 201604

REACTIONS (2)
  - Blindness unilateral [Not Recovered/Not Resolved]
  - Endophthalmitis [Recovered/Resolved with Sequelae]

NARRATIVE: CASE EVENT DATE: 20160401
